FAERS Safety Report 11057973 (Version 1)
Quarter: 2015Q2

REPORT INFORMATION
  Report Type: Report from Study
  Country: BR (occurrence: BR)
  Receive Date: 20150423
  Receipt Date: 20150423
  Transmission Date: 20150821
  Serious: Yes (Hospitalization)
  Sender: FDA-Public Use
  Company Number: BR-BAYER-2015-151372

PATIENT
  Age: 20 Year
  Sex: Male

DRUGS (2)
  1. BETAFERON [Suspect]
     Active Substance: INTERFERON BETA-1B
     Indication: MULTIPLE SCLEROSIS
     Dosage: 1 ML, QOD
     Route: 058
  2. SERTRALINE [Concomitant]
     Active Substance: SERTRALINE HYDROCHLORIDE
     Indication: ANXIETY
     Dosage: 1 DF, QD
     Route: 048
     Dates: start: 201408

REACTIONS (4)
  - Injection site rash [Not Recovered/Not Resolved]
  - Balance disorder [Recovered/Resolved]
  - Multiple sclerosis relapse [Recovered/Resolved]
  - Musculoskeletal stiffness [Recovered/Resolved]

NARRATIVE: CASE EVENT DATE: 201409
